FAERS Safety Report 12066513 (Version 1)
Quarter: 2016Q1

REPORT INFORMATION
  Report Type: Report from Study
  Country: US (occurrence: US)
  Receive Date: 20160211
  Receipt Date: 20160211
  Transmission Date: 20160526
  Serious: No
  Sender: FDA-Public Use
  Company Number: US-ABBVIE-16K-163-1531813-00

PATIENT
  Age: 58 Year
  Sex: Female

DRUGS (2)
  1. HUMIRA [Suspect]
     Active Substance: ADALIMUMAB
     Indication: RHEUMATOID ARTHRITIS
     Route: 058
     Dates: start: 20151104, end: 20151113
  2. HUMIRA [Suspect]
     Active Substance: ADALIMUMAB
     Route: 058
     Dates: start: 20151211

REACTIONS (14)
  - Productive cough [Unknown]
  - Injection site erythema [Unknown]
  - Eye pain [Unknown]
  - Injection site pain [Unknown]
  - Upper respiratory tract infection [Unknown]
  - Injection site induration [Unknown]
  - Chills [Unknown]
  - Arthralgia [Unknown]
  - Activities of daily living impaired [Unknown]
  - Upper-airway cough syndrome [Unknown]
  - Injection site warmth [Unknown]
  - Arthropod bite [Unknown]
  - Injection site swelling [Unknown]
  - Ocular hyperaemia [Unknown]

NARRATIVE: CASE EVENT DATE: 2015
